FAERS Safety Report 7136759-2 (Version None)
Quarter: 2010Q4

REPORT INFORMATION
  Report Type: 
  Country: None (occurrence: None)
  Receive Date: 20101206
  Receipt Date: 20090625
  Transmission Date: 20110411
  Serious: Yes (Death)
  Sender: FDA-Public Use
  Company Number: US-ACTELION-A-NJ2008-19859

PATIENT

DRUGS (1)
  1. TRACLEER [Suspect]
     Indication: PULMONARY ARTERIAL HYPERTENSION
     Route: 048
     Dates: start: 20070314

REACTIONS (6)
  - ANAEMIA [None]
  - BLOOD COUNT ABNORMAL [None]
  - BLOOD IRON DECREASED [None]
  - DEATH [None]
  - NASOPHARYNGITIS [None]
  - WEIGHT DECREASED [None]
